FAERS Safety Report 4284271-0 (Version None)
Quarter: 2004Q1

REPORT INFORMATION
  Report Type: 
  Country: None (occurrence: None)
  Receive Date: 20040130
  Receipt Date: 20040121
  Transmission Date: 20041129
  Serious: Yes (Hospitalization)
  Sender: FDA-Public Use
  Company Number: 04P-087-0248175-00

PATIENT
  Age: 28 Year
  Sex: Female

DRUGS (5)
  1. BIAXIN [Suspect]
     Indication: ADENOMA BENIGN
     Dosage: 200 MG, 2 IN 1 D, PER ORAL
     Route: 048
     Dates: start: 20031008, end: 20031010
  2. SERTRAPEPTASE [Concomitant]
  3. TEPRENONE [Concomitant]
  4. DICLOFENAC SODIUM [Concomitant]
  5. ISEPAMICIN SULFATE [Concomitant]

REACTIONS (4)
  - BLOOD CREATINE PHOSPHOKINASE INCREASED [None]
  - MENINGITIS [None]
  - MYALGIA [None]
  - PYREXIA [None]
